FAERS Safety Report 7177854-1 (Version None)
Quarter: 2010Q4

REPORT INFORMATION
  Report Type: 
  Country: None (occurrence: None)
  Receive Date: 20101220
  Receipt Date: 20101211
  Transmission Date: 20110411
  Serious: Yes (Other)
  Sender: FDA-Public Use
  Company Number: JP-BRISTOL-MYERS SQUIBB COMPANY-15448210

PATIENT

DRUGS (2)
  1. ABILIFY [Suspect]
     Route: 048
  2. SEROQUEL [Concomitant]
     Dosage: TABS

REACTIONS (2)
  - DELIRIUM [None]
  - RESPIRATORY DEPRESSION [None]
